FAERS Safety Report 13404784 (Version 2)
Quarter: 2017Q3

REPORT INFORMATION
  Report Type: Report from Study
  Country: None (occurrence: US)
  Receive Date: 20170405
  Receipt Date: 20170714
  Transmission Date: 20171127
  Serious: Yes (Hospitalization, Other)
  Sender: FDA-Public Use
  Company Number: US-ABBVIE-17K-163-1929745-00

PATIENT
  Age: 34 Year
  Sex: Male

DRUGS (1)
  1. HUMIRA [Suspect]
     Active Substance: ADALIMUMAB
     Indication: CROHN^S DISEASE
     Route: 058
     Dates: end: 2017

REACTIONS (5)
  - Procedural pain [Recovering/Resolving]
  - Renal vein thrombosis [Unknown]
  - Dry skin [Recovering/Resolving]
  - Chest pain [Unknown]
  - Small intestinal resection [Recovered/Resolved]

NARRATIVE: CASE EVENT DATE: 20170301
